FAERS Safety Report 7047168-9 (Version None)
Quarter: 2010Q4

REPORT INFORMATION
  Report Type: 
  Country: None (occurrence: None)
  Receive Date: 20101015
  Receipt Date: 20101011
  Transmission Date: 20110411
  Serious: Yes (Hospitalization)
  Sender: FDA-Public Use
  Company Number: IT-ROXANE LABORATORIES, INC.-2010-RO-01341RO

PATIENT
  Age: 76 Year
  Sex: Male

DRUGS (2)
  1. AZATHIOPRINE [Suspect]
     Indication: CROHN'S DISEASE
     Dosage: 100 MG
  2. METHYLPREDNISOLONE [Suspect]
     Indication: CROHN'S DISEASE
     Dosage: 16 MG

REACTIONS (1)
  - HEPATITIS B [None]
